FAERS Safety Report 4600043-9 (Version None)
Quarter: 2005Q1

REPORT INFORMATION
  Report Type: 
  Country: None (occurrence: None)
  Receive Date: 20050307
  Receipt Date: 20050225
  Transmission Date: 20050727
  Serious: Yes (Other)
  Sender: FDA-Public Use
  Company Number: JP-MERCK-0503USA00391

PATIENT
  Sex: Female

DRUGS (3)
  1. PEPCID RPD [Suspect]
     Route: 048
  2. [THERAPY UNSPECIFIED] [Concomitant]
     Route: 065
  3. LIPANTIL [Concomitant]
     Route: 065

REACTIONS (1)
  - HEPATITIS FULMINANT [None]
